FAERS Safety Report 9786486 (Version 1)
Quarter: 2013Q4

REPORT INFORMATION
  Report Type: Spontaneous
  Country: TR (occurrence: None)
  Receive Date: 20131224
  Receipt Date: 20131224
  Transmission Date: 20140711
  Serious: Yes (Other)
  Sender: FDA-Public Use
  Company Number: 2013P1022134

PATIENT
  Age: 1 Day
  Sex: Male
  Weight: 3.12 kg

DRUGS (1)
  1. ISOTRETINOIN [Suspect]
     Indication: ACNE CYSTIC
     Dosage: 20MG; QD;TRPL
     Route: 064

REACTIONS (7)
  - Maternal drugs affecting foetus [None]
  - Anomaly of external ear congenital [None]
  - Facial asymmetry [None]
  - Aorta hypoplasia [None]
  - Anomalous pulmonary venous connection [None]
  - Ventricular septal defect [None]
  - Atrial septal defect [None]
